FAERS Safety Report 5749951-6 (Version None)
Quarter: 2008Q2

REPORT INFORMATION
  Report Type: 
  Country: None (occurrence: None)
  Receive Date: 20080521
  Receipt Date: 20080521
  Transmission Date: 20081010
  Serious: No
  Sender: FDA-Public Use
  Company Number: None

PATIENT
  Age: 28 Year
  Sex: Male

DRUGS (7)
  1. ATG FRESENIUS [Suspect]
     Indication: RESPIRATORY ARREST
     Dosage: 190 MG QD PR
     Dates: start: 20080118, end: 20080119
  2. SEPTRA [Concomitant]
  3. BUSULFAN [Concomitant]
  4. ALLOPUTINOL [Concomitant]
  5. METOCLOPRAMIDE [Concomitant]
  6. HEPARIN [Concomitant]
  7. CYTOXAN [Concomitant]

REACTIONS (5)
  - APNOEA [None]
  - CHILLS [None]
  - CONVULSION [None]
  - INFUSION RELATED REACTION [None]
  - PYREXIA [None]
